FAERS Safety Report 8721244 (Version 4)
Quarter: 2012Q4

REPORT INFORMATION
  Report Type: 
  Country: JP (occurrence: JP)
  Receive Date: 20120813
  Receipt Date: 20121215
  Transmission Date: 20130627
  Serious: Yes (Hospitalization)
  Sender: FDA-Public Use
  Company Number: JP-009507513-2012SP032668

PATIENT
  Age: 66 Year
  Sex: Male
  Weight: 77 kg

DRUGS (19)
  1. PEGINTRON [Suspect]
     Indication: CHRONIC HEPATITIS C
     Dosage: 1.5mcg/kg/week
     Route: 058
     Dates: start: 20120411, end: 20120425
  2. PEGINTRON [Suspect]
     Dosage: 1.5mcg/kg/week
     Route: 058
     Dates: start: 20120510, end: 20120516
  3. PEGINTRON [Suspect]
     Dosage: 1.1 Microgram per kilogram, qw
     Route: 058
     Dates: start: 20120523, end: 20120523
  4. PEGINTRON [Suspect]
     Dosage: 1.5mcg/kg/week
     Route: 058
     Dates: start: 20120530
  5. REBETOL [Suspect]
     Indication: CHRONIC HEPATITIS C
     Dosage: 800 mg, QD
     Route: 048
     Dates: start: 20120411, end: 20120425
  6. REBETOL [Suspect]
     Dosage: 400 mg, QD
     Route: 048
     Dates: start: 20120426, end: 20120427
  7. REBETOL [Suspect]
     Dosage: 200 mg, QD
     Route: 048
     Dates: start: 20120428, end: 20120429
  8. REBETOL [Suspect]
     Dosage: 200mg,on alternate days
     Route: 048
     Dates: start: 20120430, end: 20120502
  9. REBETOL [Suspect]
     Dosage: 200 mg, QD
     Route: 048
     Dates: start: 20120515, end: 20120612
  10. REBETOL [Suspect]
     Dosage: 200mg/day, 400mg/day, alternately, Cyclical
     Route: 048
     Dates: start: 20120613, end: 20120621
  11. REBETOL [Suspect]
     Dosage: 200 mg/day, 400 mg/day, 400 mg/day, alternately
     Route: 048
     Dates: start: 20120622, end: 20120808
  12. REBETOL [Suspect]
     Dosage: 200 mg/day, 400mg/day, alternately
     Route: 048
     Dates: start: 20120803
  13. TELAVIC [Suspect]
     Indication: CHRONIC HEPATITIS C
     Dosage: 2250 mg, qd
     Route: 048
     Dates: start: 20120411, end: 20120418
  14. TELAVIC [Suspect]
     Dosage: 1500 mg, qd
     Route: 048
     Dates: start: 20120419, end: 20120503
  15. ALLEGRA [Concomitant]
     Indication: ERYTHEMA
     Dosage: 120 mg, QD
     Route: 048
     Dates: start: 20120413, end: 20120427
  16. DIFLAL [Concomitant]
     Indication: ERYTHEMA
     Dosage: UNK UNK, Unknown
     Route: 061
     Dates: start: 20120413
  17. ARGAMATE JELLY [Concomitant]
     Indication: PRODUCT USED FOR UNKNOWN INDICATION
     Dosage: ARGAMATE JELLY
     Route: 048
     Dates: start: 20120419, end: 20120424
  18. DOGMATYL [Concomitant]
     Indication: DEPRESSION
     Dosage: 150 mg, QD
     Route: 048
     Dates: start: 20120501, end: 20120518
  19. ALOSITOL [Concomitant]
     Indication: HYPERURICAEMIA
     Dosage: 200 mg, qd
     Route: 048
     Dates: start: 20120418

REACTIONS (11)
  - Nausea [Recovering/Resolving]
  - Decreased appetite [Recovering/Resolving]
  - Renal disorder [Recovered/Resolved]
  - Anaemia [Not Recovered/Not Resolved]
  - Erythema [None]
  - Pruritus [None]
  - Hyperuricaemia [None]
  - Hyperkalaemia [None]
  - Tremor [None]
  - Depression [None]
  - Thrombotic microangiopathy [None]
